FAERS Safety Report 7905700-4 (Version None)
Quarter: 2011Q4

REPORT INFORMATION
  Report Type: 
  Country: None (occurrence: None)
  Receive Date: 20111108
  Receipt Date: 20111024
  Transmission Date: 20120403
  Serious: Yes (Life-Threatening, Hospitalization, Other)
  Sender: FDA-Public Use
  Company Number: 2011MA015717

PATIENT
  Age: 4 Year
  Sex: Female

DRUGS (2)
  1. DIAZEPAM [Suspect]
     Indication: CONVULSION
     Dosage: 0.6 MG/KG;RTL
     Route: 054
  2. LORAZEPAM [Suspect]
     Indication: CONVULSION
     Dosage: 0.05 MG/KG;2X;IV
     Route: 042

REACTIONS (2)
  - RESPIRATORY ACIDOSIS [None]
  - RESPIRATORY ARREST [None]
